FAERS Safety Report 6975685-6 (Version None)
Quarter: 2010Q3

REPORT INFORMATION
  Report Type: 
  Country: None (occurrence: None)
  Receive Date: 20100910
  Receipt Date: 20090330
  Transmission Date: 20110219
  Serious: No
  Sender: FDA-Public Use
  Company Number: US-WYE-H08763009

PATIENT
  Age: 44 Year
  Sex: Female
  Weight: 61.29 kg

DRUGS (2)
  1. PRISTIQ [Suspect]
     Indication: DEPRESSION
     Route: 048
     Dates: start: 20090216
  2. PAXIL [Concomitant]

REACTIONS (9)
  - BACK PAIN [None]
  - BREAST PAIN [None]
  - BURNING SENSATION [None]
  - CHEST DISCOMFORT [None]
  - CHROMATURIA [None]
  - CONSTIPATION [None]
  - MYALGIA [None]
  - NAUSEA [None]
  - WEIGHT DECREASED [None]
